FAERS Safety Report 9720521 (Version 1)
Quarter: 2013Q4

REPORT INFORMATION
  Report Type: Spontaneous
  Country: DE (occurrence: DE)
  Receive Date: 20131129
  Receipt Date: 20131129
  Transmission Date: 20140711
  Serious: Yes (Life-Threatening, Hospitalization)
  Sender: FDA-Public Use
  Company Number: DE-JNJFOC-20131116401

PATIENT
  Age: 67 Year
  Sex: Male

DRUGS (13)
  1. XARELTO [Suspect]
     Indication: CEREBROVASCULAR ACCIDENT PROPHYLAXIS
     Route: 048
     Dates: start: 20130430, end: 20131031
  2. XARELTO [Suspect]
     Indication: CEREBROVASCULAR ACCIDENT PROPHYLAXIS
     Route: 048
  3. XARELTO [Suspect]
     Indication: ATRIAL FIBRILLATION
     Route: 048
     Dates: start: 20130430, end: 20131031
  4. XARELTO [Suspect]
     Indication: ATRIAL FIBRILLATION
     Route: 048
  5. BISOPROLOL [Concomitant]
     Indication: HYPERTENSION
     Route: 065
     Dates: start: 2011
  6. TAMSULOSIN [Concomitant]
     Indication: PROSTATIC DISORDER
     Route: 065
     Dates: start: 2011
  7. VOTUM [Concomitant]
     Indication: HYPERTENSION
     Route: 065
     Dates: start: 2012
  8. FRAXIPARIN [Concomitant]
     Route: 058
  9. NOVALGIN [Concomitant]
     Route: 065
  10. OMEP [Concomitant]
     Route: 065
  11. ALDACTONE [Concomitant]
     Route: 065
  12. CANDESARTAN [Concomitant]
     Route: 065
  13. EZETROL [Concomitant]
     Route: 065

REACTIONS (4)
  - Ascites [Unknown]
  - Splenic rupture [Not Recovered/Not Resolved]
  - Renal failure acute [Recovered/Resolved]
  - Splenic haemorrhage [Recovered/Resolved]
